FAERS Safety Report 14873124 (Version 10)
Quarter: 2021Q4

REPORT INFORMATION
  Report Type: Spontaneous
  Country: DE (occurrence: DE)
  Receive Date: 20180510
  Receipt Date: 20211022
  Transmission Date: 20220303
  Serious: Yes (Disabling, Other)
  Sender: FDA-Public Use
  Company Number: DE-009507513-1804DEU009464

PATIENT
  Age: 32 Year
  Sex: Male
  Weight: 92 kg

DRUGS (5)
  1. FINASTERIDE [Suspect]
     Active Substance: FINASTERIDE
     Indication: Androgenetic alopecia
     Dosage: 1 MILLIGRAM, ONCE A DAY
     Route: 048
     Dates: start: 20120131, end: 20130213
  2. FINASTERIDE [Suspect]
     Active Substance: FINASTERIDE
     Dosage: UNK
     Route: 065
     Dates: start: 201406, end: 20141001
  3. FINASTERIDE [Suspect]
     Active Substance: FINASTERIDE
     Dosage: 1 MILLIGRAM, ONCE A DAY
     Route: 048
     Dates: start: 20150113
  4. PROPECIA [Suspect]
     Active Substance: FINASTERIDE
     Indication: Androgenetic alopecia
     Dosage: 1 MILLIGRAM, ONCE A DAY
     Route: 048
     Dates: start: 20150113, end: 20150223
  5. PROPECIA [Suspect]
     Active Substance: FINASTERIDE
     Indication: Alopecia
     Dosage: 0.5 MILLIGRAM, ONCE A DAY (HALF DOSE OF 1 MG TABLET (0.5 MG DAILY))
     Route: 048
     Dates: start: 20150223, end: 201511

REACTIONS (76)
  - Anxiety [Not Recovered/Not Resolved]
  - Penile pain [Unknown]
  - Testicular pain [Unknown]
  - Hypohidrosis [Unknown]
  - Fatigue [Unknown]
  - Prostatic pain [Unknown]
  - Suicidal ideation [Recovered/Resolved]
  - Anhedonia [Unknown]
  - Semen viscosity decreased [Recovering/Resolving]
  - Memory impairment [Unknown]
  - Reading disorder [Unknown]
  - Scrotal disorder [Unknown]
  - Mood swings [Unknown]
  - Listless [Unknown]
  - Dyspepsia [Unknown]
  - Panic attack [Unknown]
  - Sexual dysfunction [Unknown]
  - Erectile dysfunction [Not Recovered/Not Resolved]
  - Loss of libido [Not Recovered/Not Resolved]
  - Urinary incontinence [Unknown]
  - Penile size reduced [Unknown]
  - Anorgasmia [Unknown]
  - Apathy [Unknown]
  - Semen volume decreased [Recovering/Resolving]
  - Sleep disorder [Not Recovered/Not Resolved]
  - Pollakiuria [Unknown]
  - Prostatic disorder [Unknown]
  - Pain [Recovered/Resolved]
  - Incorrect dosage administered [Unknown]
  - Cognitive disorder [Unknown]
  - Adjustment disorder [Unknown]
  - Bladder stenosis [Unknown]
  - Blood testosterone decreased [Recovered/Resolved]
  - Depression [Recovered/Resolved]
  - Infertility male [Not Recovered/Not Resolved]
  - Abdominal pain [Not Recovered/Not Resolved]
  - Peripheral coldness [Unknown]
  - Reproductive tract hypoplasia, male [Unknown]
  - Hypospermia [Not Recovered/Not Resolved]
  - Penis disorder [Unknown]
  - Hyperhidrosis [Unknown]
  - Nervous system disorder [Unknown]
  - Post 5-alpha-reductase inhibitor syndrome [Unknown]
  - Zinc deficiency [Unknown]
  - Adjustment disorder [Unknown]
  - Late onset hypogonadism syndrome [Unknown]
  - Mitochondrial cytopathy [Unknown]
  - Social avoidant behaviour [Unknown]
  - Thyroid cyst [Unknown]
  - Dizziness [Unknown]
  - Pelvic pain [Unknown]
  - Pruritus [Unknown]
  - Hypertension [Unknown]
  - Memory impairment [Unknown]
  - Headache [Unknown]
  - Weight increased [Unknown]
  - Hypoaesthesia [Unknown]
  - Cryptorchism [Unknown]
  - Hypohidrosis [Unknown]
  - Crying [Unknown]
  - Hypertriglyceridaemia [Unknown]
  - Back pain [Unknown]
  - Genital rash [Unknown]
  - Hypovitaminosis [Unknown]
  - Obesity [Unknown]
  - Hyperuricaemia [Unknown]
  - Product dose omission issue [Unknown]
  - Vitamin D deficiency [Unknown]
  - Penile erythema [Unknown]
  - Thyroid disorder [Unknown]
  - Biotin deficiency [Unknown]
  - Chlamydial infection [Unknown]
  - Vitamin B1 deficiency [Unknown]
  - Myosclerosis [Unknown]
  - Functional gastrointestinal disorder [Unknown]
  - Hypercholesterolaemia [Unknown]

NARRATIVE: CASE EVENT DATE: 20150101
